FAERS Safety Report 6294607-7 (Version None)
Quarter: 2009Q3

REPORT INFORMATION
  Report Type: 
  Country: None (occurrence: None)
  Receive Date: 20090803
  Receipt Date: 20090707
  Transmission Date: 20100115
  Serious: No
  Sender: FDA-Public Use
  Company Number: US-BAYER-200927150NA

PATIENT
  Age: 68 Year
  Sex: Male
  Weight: 82 kg

DRUGS (4)
  1. MAGNEVIST [Suspect]
     Indication: NUCLEAR MAGNETIC RESONANCE IMAGING
     Dosage: HAND INJECTED INTO SMALL VEIN IN RIGHT ARM
     Route: 042
     Dates: start: 20090401, end: 20090401
  2. PAXIL [Concomitant]
  3. PREDNISONE [Concomitant]
     Dosage: TOTAL DAILY DOSE: 15 MG
  4. IMMUNE GLOBULIN INTRAVENOUS (HUMAN) [Concomitant]
     Dosage: TOTAL DAILY DOSE: 80 G

REACTIONS (4)
  - INJECTION SITE ERYTHEMA [None]
  - INJECTION SITE HAEMATOMA [None]
  - INJECTION SITE INDURATION [None]
  - PHLEBITIS [None]
